FAERS Safety Report 9789081 (Version 1)
Quarter: 2013Q4

REPORT INFORMATION
  Report Type: Report from Study
  Country: US (occurrence: US)
  Receive Date: 20131230
  Receipt Date: 20131230
  Transmission Date: 20140711
  Serious: Yes (Hospitalization)
  Sender: FDA-Public Use
  Company Number: US-ABBVIE-13P-163-1181624-00

PATIENT
  Sex: Male
  Weight: 77.18 kg

DRUGS (15)
  1. HUMIRA [Suspect]
     Indication: CROHN^S DISEASE
  2. HUMIRA [Suspect]
     Dates: start: 201307, end: 201307
  3. HUMIRA [Suspect]
     Dosage: TWO WEEKS AFTER 160MG DOSE
     Dates: start: 2013, end: 2013
  4. HUMIRA [Suspect]
     Dosage: FOUR WEEKS AFTER 160 MG DOSE
     Dates: start: 2013
  5. PREDNISONE [Concomitant]
     Indication: CROHN^S DISEASE
     Dosage: THEN WEANED OFF
     Route: 048
     Dates: end: 20131002
  6. PREDNISONE [Concomitant]
     Route: 048
     Dates: start: 20131104, end: 20131124
  7. PREDNISONE [Concomitant]
     Route: 048
     Dates: start: 20131125
  8. VICODIN [Concomitant]
     Indication: PAIN
  9. RISPERDAL [Concomitant]
     Indication: PRODUCT USED FOR UNKNOWN INDICATION
     Dosage: LOW DOSE
  10. IRON [Concomitant]
     Indication: MINERAL SUPPLEMENTATION
  11. ASPIRIN [Concomitant]
     Indication: PRODUCT USED FOR UNKNOWN INDICATION
  12. CALCIUM + VITAMIN D [Concomitant]
     Indication: BONE DISORDER
  13. CALCIUM + VITAMIN D [Concomitant]
     Indication: PROPHYLAXIS
  14. MULTIVITAMIN [Concomitant]
     Indication: VITAMIN SUPPLEMENTATION
  15. FISH OIL [Concomitant]
     Indication: SUPPLEMENTATION THERAPY

REACTIONS (13)
  - Gastrointestinal inflammation [Recovered/Resolved]
  - Abdominal adhesions [Recovered/Resolved]
  - Weight decreased [Not Recovered/Not Resolved]
  - Abdominal pain upper [Recovered/Resolved]
  - Hypoaesthesia [Not Recovered/Not Resolved]
  - Hypoaesthesia [Not Recovered/Not Resolved]
  - Myalgia [Not Recovered/Not Resolved]
  - Muscle strain [Not Recovered/Not Resolved]
  - Arthritis [Not Recovered/Not Resolved]
  - Depression [Not Recovered/Not Resolved]
  - Anxiety [Not Recovered/Not Resolved]
  - Diarrhoea [Not Recovered/Not Resolved]
  - Hypertension [Not Recovered/Not Resolved]
